FAERS Safety Report 10080802 (Version 3)
Quarter: 2014Q2

REPORT INFORMATION
  Report Type: Report from Study
  Country: CA (occurrence: CA)
  Receive Date: 20140416
  Receipt Date: 20140422
  Transmission Date: 20141212
  Serious: Yes (Hospitalization, Other)
  Sender: FDA-Public Use
  Company Number: CA-JNJFOC-20140311792

PATIENT
  Age: 43 Year
  Sex: Male
  Weight: 71 kg

DRUGS (4)
  1. REMICADE [Suspect]
     Indication: CROHN^S DISEASE
     Route: 042
     Dates: start: 20060516
  2. IMURAN [Concomitant]
     Route: 065
  3. CHOLESTYRAMINE [Concomitant]
     Route: 065
  4. T-3 [Concomitant]
     Route: 065

REACTIONS (5)
  - Intestinal resection [Recovering/Resolving]
  - Cholecystectomy [Recovering/Resolving]
  - Fistula [Recovering/Resolving]
  - Abdominal abscess [Recovering/Resolving]
  - Weight decreased [Recovering/Resolving]
